FAERS Safety Report 9724134 (Version 1)
Quarter: 2013Q4

REPORT INFORMATION
  Report Type: Spontaneous
  Country: US (occurrence: US)
  Receive Date: 20131202
  Receipt Date: 20131202
  Transmission Date: 20140711
  Serious: No
  Sender: FDA-Public Use
  Company Number: US-AMGEN-USASP2013080939

PATIENT
  Age: 30 Year
  Sex: Female

DRUGS (3)
  1. ENBREL [Suspect]
     Indication: PSORIASIS
     Dosage: 50 MG, 2 TIMES/WK
     Route: 065
  2. HUMIRA [Concomitant]
     Indication: PSORIASIS
     Dosage: UNK
     Dates: start: 2013, end: 2013
  3. STELARA [Concomitant]
     Indication: PSORIASIS
     Dosage: UNK
     Dates: start: 2013, end: 2013

REACTIONS (2)
  - Erythema [Not Recovered/Not Resolved]
  - Skin plaque [Recovered/Resolved]
